FAERS Safety Report 10717668 (Version 2)
Quarter: 2015Q1

REPORT INFORMATION
  Report Type: Report from Study
  Country: HU (occurrence: HU)
  Receive Date: 20150116
  Receipt Date: 20150124
  Transmission Date: 20150721
  Serious: Yes (Hospitalization)
  Sender: FDA-Public Use
  Company Number: HU-ABBVIE-15P-076-1329995-00

PATIENT
  Age: 77 Year
  Sex: Male
  Weight: 72 kg

DRUGS (12)
  1. ABT-333 [Suspect]
     Active Substance: DASABUVIR
     Indication: CHRONIC HEPATITIS C
     Route: 048
     Dates: start: 20141223, end: 20150106
  2. FUROSEMIDE. [Concomitant]
     Active Substance: FUROSEMIDE
     Indication: CORONARY ARTERY DISEASE
     Route: 048
     Dates: start: 2011
  3. AMLODIPINE [Concomitant]
     Active Substance: AMLODIPINE BESYLATE
     Indication: CORONARY ARTERY DISEASE
  4. NORMIX [Concomitant]
     Active Substance: RIFAXIMIN
     Indication: HEPATIC ENCEPHALOPATHY PROPHYLAXIS
     Route: 048
     Dates: start: 20141230
  5. SPIRONOLACTONE. [Concomitant]
     Active Substance: SPIRONOLACTONE
     Indication: HEPATIC CIRRHOSIS
     Route: 048
     Dates: start: 2011
  6. ABT-450/RITONAVIR/ABT-267 [Suspect]
     Active Substance: OMBITASVIR\PARITAPREVIR\RITONAVIR
     Indication: CHRONIC HEPATITIS C
     Dosage: 150/100/25 MG IN 1D
     Route: 048
     Dates: start: 20141223, end: 20150106
  7. LACTULOSE. [Concomitant]
     Active Substance: LACTULOSE
     Indication: HEPATIC ENCEPHALOPATHY PROPHYLAXIS
     Route: 048
     Dates: start: 20141230
  8. RIBAVIRIN. [Suspect]
     Active Substance: RIBAVIRIN
     Indication: CHRONIC HEPATITIS C
     Dosage: 400 MG IN AM/ 600 MG IN PM TOTAL DAILY DOSE: 1000 MG
     Route: 048
     Dates: start: 20141223, end: 20150106
  9. AMLODIPINE [Concomitant]
     Active Substance: AMLODIPINE BESYLATE
     Indication: HYPERTENSION
     Route: 048
     Dates: start: 201404
  10. CLOPIDOGREL [Concomitant]
     Active Substance: CLOPIDOGREL BISULFATE
     Indication: PRODUCT USED FOR UNKNOWN INDICATION
     Route: 048
  11. PANTOPRAZOLE [Concomitant]
     Active Substance: PANTOPRAZOLE SODIUM
     Indication: PEPTIC ULCER
     Route: 048
     Dates: start: 2013
  12. PRASUGREL [Concomitant]
     Active Substance: PRASUGREL
     Indication: CORONARY ARTERY DISEASE
     Route: 048
     Dates: start: 201404

REACTIONS (1)
  - Hepatic failure [Unknown]

NARRATIVE: CASE EVENT DATE: 20150106
